FAERS Safety Report 7583945-3 (Version None)
Quarter: 2011Q2

REPORT INFORMATION
  Report Type: 
  Country: None (occurrence: None)
  Receive Date: 20110630
  Receipt Date: 20110620
  Transmission Date: 20111010
  Serious: Yes (Other)
  Sender: FDA-Public Use
  Company Number: IT-ELI_LILLY_AND_COMPANY-IT201106005933

PATIENT
  Sex: Female

DRUGS (5)
  1. BYETTA [Suspect]
     Dosage: 20 UG, QD
     Route: 058
     Dates: start: 20110611, end: 20110613
  2. PANTOPRAZOLE SODIUM [Concomitant]
     Dosage: 20 MG, UNK
  3. METFORMIN HCL [Concomitant]
     Dosage: 850 MG, UNK
     Route: 048
  4. EUTIROX [Concomitant]
     Dosage: 75 UG, UNK
     Route: 048
  5. IDROQUARK [Concomitant]
     Dosage: 5 MG, UNK
     Route: 048

REACTIONS (6)
  - RETCHING [None]
  - HYPERSOMNIA [None]
  - ABDOMINAL PAIN UPPER [None]
  - DIZZINESS [None]
  - HYPERHIDROSIS [None]
  - ASTHENIA [None]
